FAERS Safety Report 9490125 (Version 1)
Quarter: 2013Q3

REPORT INFORMATION
  Report Type: Report from Study
  Country: GB (occurrence: GB)
  Receive Date: 20130830
  Receipt Date: 20130830
  Transmission Date: 20140515
  Serious: Yes (Hospitalization, Other)
  Sender: FDA-Public Use
  Company Number: GB-PFIZER INC-2013248324

PATIENT
  Age: 75 Year
  Sex: Male

DRUGS (17)
  1. DOXORUBICIN [Suspect]
     Indication: DIFFUSE LARGE B-CELL LYMPHOMA
     Dosage: 90 MG (1 IN 3 WK)
     Route: 042
     Dates: start: 20130625
  2. DOXORUBICIN [Suspect]
     Dosage: 2 MG (1 IN 3 WK)
     Route: 042
     Dates: start: 20130625
  3. CYCLOPHOSPHAMIDE [Suspect]
     Indication: DIFFUSE LARGE B-CELL LYMPHOMA
     Dosage: 1300 MG (1 IN 3 WK)
     Route: 042
     Dates: start: 20130625
  4. RITUXIMAB [Suspect]
     Indication: DIFFUSE LARGE B-CELL LYMPHOMA
     Dosage: 1.23 MG/ML VOL 570 ML (1 IN 3 WK)
     Route: 042
     Dates: start: 20130625
  5. VINCRISTINE [Suspect]
     Indication: DIFFUSE LARGE B-CELL LYMPHOMA
     Dosage: 2 MG (1 IN 3 WK)
     Route: 042
     Dates: start: 20130625
  6. VINCRISTINE [Suspect]
     Dosage: 2 MG (1 IN 3 WK)
     Route: 042
     Dates: start: 20130625
  7. PREDNISONE [Suspect]
     Indication: DIFFUSE LARGE B-CELL LYMPHOMA
     Dosage: 100 MG (1 IN 3 WK)
     Route: 048
     Dates: start: 20130625
  8. PREDNISONE [Suspect]
     Dosage: 2 MG (1 IN 3 WK)
     Route: 042
     Dates: start: 20130625
  9. ADCAL [Concomitant]
     Indication: PROPHYLAXIS
     Dosage: UNK
     Dates: start: 2011
  10. LEVOTHYROXINE [Concomitant]
     Indication: HYPOTHYROIDISM
     Dosage: UNK
     Dates: start: 1979
  11. BENZYDAMINE [Concomitant]
     Indication: FUNGAL INFECTION
     Dosage: UNK
     Dates: start: 20130708
  12. CHLORHEXIDINE [Concomitant]
     Indication: FUNGAL INFECTION
     Dosage: UNK
     Dates: start: 20130708
  13. SANDO K [Concomitant]
     Indication: HYPOKALAEMIA
     Dosage: UNK
     Dates: start: 20130710
  14. ALLOPURINOL [Concomitant]
     Indication: PROPHYLAXIS
  15. ACICLOVIR [Concomitant]
     Indication: PROPHYLAXIS
     Dosage: UNK
     Dates: start: 20130621
  16. OMEPRAZOLE [Concomitant]
     Indication: PROPHYLAXIS
     Dosage: UNK
     Dates: start: 20130625
  17. PARACETAMOL [Concomitant]
     Dosage: AS REQUIRED

REACTIONS (1)
  - Pancytopenia [Not Recovered/Not Resolved]
